FAERS Safety Report 4572099-3 (Version None)
Quarter: 2005Q1

REPORT INFORMATION
  Report Type: 
  Country: None (occurrence: None)
  Receive Date: 20050202
  Receipt Date: 20050118
  Transmission Date: 20050727
  Serious: Yes (Disabling, Other)
  Sender: FDA-Public Use
  Company Number: USA050188592

PATIENT
  Age: 47 Year
  Sex: Female
  Weight: 88 kg

DRUGS (4)
  1. HUMALOG [Suspect]
  2. HUMULIN 70/30 [Suspect]
  3. HUMULIN R [Suspect]
  4. INSULIN [Suspect]

REACTIONS (3)
  - CEREBROVASCULAR ACCIDENT [None]
  - THROMBOSIS [None]
  - TRANSIENT ISCHAEMIC ATTACK [None]
